FAERS Safety Report 5855351-0 (Version None)
Quarter: 2008Q3

REPORT INFORMATION
  Report Type: 
  Country: None (occurrence: None)
  Receive Date: 20080822
  Receipt Date: 20080808
  Transmission Date: 20090109
  Serious: Yes (Other)
  Sender: FDA-Public Use
  Company Number: 032069

PATIENT
  Age: 45 Year
  Sex: Male

DRUGS (8)
  1. ADDERALL 10 [Suspect]
     Indication: TIC
     Dosage: 20 MG, TID, ORAL
     Route: 048
     Dates: start: 20080101
  2. ATENOLOL [Concomitant]
  3. DYAZIDE [Concomitant]
  4. PRINIVIL [Concomitant]
  5. ACIPHEX [Concomitant]
  6. SYNTHROID [Concomitant]
  7. XANAX [Concomitant]
  8. SEROQUEL [Concomitant]

REACTIONS (3)
  - DECREASED INTEREST [None]
  - MEMORY IMPAIRMENT [None]
  - SOMNOLENCE [None]
